FAERS Safety Report 7770518-2 (Version None)
Quarter: 2011Q3

REPORT INFORMATION
  Report Type: 
  Country: None (occurrence: None)
  Receive Date: 20110922
  Receipt Date: 20101122
  Transmission Date: 20111222
  Serious: Yes (Other)
  Sender: FDA-Public Use
  Company Number: US-ASTRAZENECA-2010SE48916

PATIENT
  Age: 45 Year
  Sex: Female

DRUGS (9)
  1. IMITREX [Concomitant]
  2. SEROQUEL [Suspect]
     Indication: GASTRIC DISORDER
     Route: 048
     Dates: start: 20040101
  3. KLONOPIN [Concomitant]
  4. COMPAZINE [Concomitant]
  5. SEROQUEL [Suspect]
     Indication: DEPRESSION
     Route: 048
     Dates: start: 20040101
  6. SEROQUEL [Suspect]
     Indication: INSOMNIA
     Route: 048
     Dates: start: 20040101
  7. TRAMADOL HCL [Concomitant]
  8. LOMOTIL [Concomitant]
  9. SEROQUEL [Suspect]
     Indication: BIPOLAR DISORDER
     Route: 048
     Dates: start: 20040101

REACTIONS (3)
  - IMPAIRED DRIVING ABILITY [None]
  - PARTIAL SEIZURES [None]
  - DRUG DOSE OMISSION [None]
